FAERS Safety Report 24205610 (Version 1)
Quarter: 2024Q3

REPORT INFORMATION
  Report Type: Spontaneous
  Country: US (occurrence: None)
  Receive Date: 20240812
  Receipt Date: 20240812
  Transmission Date: 20241017
  Serious: Yes (Other)
  Sender: Public
  Company Number: None

PATIENT
  Age: 75 Year
  Sex: Female
  Weight: 47.25 kg

DRUGS (1)
  1. OCTAGAM IMMUNE GLOBULIN (HUMAN) [Suspect]
     Active Substance: HUMAN IMMUNOGLOBULIN G
     Indication: Myositis
     Dosage: 100 ML Q 3 WEEKS INTRAVENOUS
     Route: 042

REACTIONS (3)
  - Pruritus [None]
  - Urticaria [None]
  - Infusion related reaction [None]

NARRATIVE: CASE EVENT DATE: 20240722
